FAERS Safety Report 11517220 (Version 1)
Quarter: 2015Q3

REPORT INFORMATION
  Report Type: Spontaneous
  Country: US (occurrence: None)
  Receive Date: 20150916
  Receipt Date: 20150916
  Transmission Date: 20151125
  Serious: Yes (Disabling)
  Sender: FDA-Public Use
  Company Number: None

PATIENT
  Age: 41 Year
  Sex: Female
  Weight: 58.97 kg

DRUGS (5)
  1. CIPRO [Suspect]
     Active Substance: CIPROFLOXACIN HYDROCHLORIDE
     Indication: URINARY TRACT INFECTION
     Route: 048
     Dates: start: 20150911, end: 20150912
  2. LEVAQUIN [Suspect]
     Active Substance: LEVOFLOXACIN
     Indication: URINARY TRACT INFECTION
     Route: 048
     Dates: start: 20150326, end: 20150331
  3. MAGNESIUM [Concomitant]
     Active Substance: MAGNESIUM
  4. TYLENOL [Concomitant]
     Active Substance: ACETAMINOPHEN
  5. MILK THISTLE [Concomitant]
     Active Substance: MILK THISTLE

REACTIONS (17)
  - Abasia [None]
  - Bedridden [None]
  - Head discomfort [None]
  - Pain in extremity [None]
  - Pyrexia [None]
  - Tendonitis [None]
  - Arthralgia [None]
  - Musculoskeletal pain [None]
  - Pain [None]
  - Medial tibial stress syndrome [None]
  - Burning sensation [None]
  - Urinary tract infection [None]
  - Muscle atrophy [None]
  - Soft tissue atrophy [None]
  - Musculoskeletal chest pain [None]
  - Neck pain [None]
  - Suicidal ideation [None]

NARRATIVE: CASE EVENT DATE: 20150326
